FAERS Safety Report 9445688 (Version 2)
Quarter: 2013Q3

REPORT INFORMATION
  Report Type: Spontaneous
  Country: US (occurrence: US)
  Receive Date: 20130807
  Receipt Date: 20130821
  Transmission Date: 20140515
  Serious: Yes (Other)
  Sender: FDA-Public Use
  Company Number: US-JNJFOC-20130718384

PATIENT
  Age: 66 Year
  Sex: Male
  Weight: 81.65 kg

DRUGS (1)
  1. NUCYNTA IR [Suspect]
     Indication: BACK PAIN
     Dosage: TWICE A DAY
     Route: 048
     Dates: start: 20130515, end: 201306

REACTIONS (2)
  - Drug dependence [Recovered/Resolved]
  - Dissociation [Recovered/Resolved]
